FAERS Safety Report 4482073-3 (Version None)
Quarter: 2004Q4

REPORT INFORMATION
  Report Type: 
  Country: None (occurrence: None)
  Receive Date: 20041020
  Receipt Date: 20041001
  Transmission Date: 20050328
  Serious: Yes (Other)
  Sender: FDA-Public Use
  Company Number: JP_040703876

PATIENT
  Age: 81 Year
  Sex: Female

DRUGS (4)
  1. EVISTA [Suspect]
     Indication: OSTEOPOROSIS
     Dosage: 60 MG/1 DAY
     Dates: start: 20040630, end: 20040709
  2. MUCOSTA (REBAMIPIDE) [Concomitant]
  3. LOXONIN (LOXOPROFEN SODIUM) [Concomitant]
  4. ADOFEED (FLURBIPROFEN) [Concomitant]

REACTIONS (2)
  - PRODUCTIVE COUGH [None]
  - RESPIRATORY FAILURE [None]
